FAERS Safety Report 21499524 (Version 1)
Quarter: 2022Q4

REPORT INFORMATION
  Report Type: Spontaneous
  Country: US (occurrence: None)
  Receive Date: 20221024
  Receipt Date: 20221024
  Transmission Date: 20230113
  Serious: Yes (Death)
  Sender: FDA-Public Use
  Company Number: None

PATIENT
  Age: 61 Year
  Sex: Female

DRUGS (18)
  1. ACTEMRA ACTPEN [Suspect]
     Active Substance: TOCILIZUMAB
     Indication: Psoriatic arthropathy
     Dosage: FREQUENCY : WEEKLY;?
     Route: 058
     Dates: start: 20220702
  2. Motrin IB 200mg Tablets [Concomitant]
  3. Multivitamin Adult 50+ Tablets [Concomitant]
  4. Pyridostigmine 180mg Tablets [Concomitant]
  5. Ativan 0.5mg Tablets [Concomitant]
  6. Synthroid 0.175mg Tablets [Concomitant]
  7. FOLIC ACID [Concomitant]
     Active Substance: FOLIC ACID
  8. Livalo 4mg Tablets [Concomitant]
  9. Methotrexate 25mg/ml PF Single Use [Concomitant]
  10. Zofran 8mg Tablets [Concomitant]
  11. Vitamin D3 2,000 IU Capsules [Concomitant]
  12. Ferrous Sulfate 325mg Tablets [Concomitant]
  13. Oxycodone/APAP 7.5/325mg Tablets [Concomitant]
  14. TRINTELLIX [Concomitant]
     Active Substance: VORTIOXETINE HYDROBROMIDE
  15. PEPCID AC MAXIMUM STRENGTH [Concomitant]
     Active Substance: FAMOTIDINE
  16. B-Complex Capsules [Concomitant]
  17. Prevagen Extra Strength Capsules [Concomitant]
  18. Biotin 1000mcg Tablets [Concomitant]

REACTIONS (1)
  - Death [None]

NARRATIVE: CASE EVENT DATE: 20221004
